FAERS Safety Report 14273271 (Version 1)
Quarter: 2017Q4

REPORT INFORMATION
  Report Type: Spontaneous
  Country: ES (occurrence: ES)
  Receive Date: 20171211
  Receipt Date: 20171211
  Transmission Date: 20180321
  Serious: Yes (Hospitalization)
  Sender: FDA-Public Use
  Company Number: ES-OTSUKA-2017_007650

PATIENT
  Age: 74 Year
  Sex: Male

DRUGS (3)
  1. ABILIFY [Suspect]
     Active Substance: ARIPIPRAZOLE
     Indication: PERSISTENT DEPRESSIVE DISORDER
     Dosage: 2.5 MG, DAILY
     Route: 048
     Dates: start: 20170311, end: 20170317
  2. ZOPICLONE [Suspect]
     Active Substance: ZOPICLONE
     Indication: PERSISTENT DEPRESSIVE DISORDER
     Dosage: 7.5 MG, DAILY
     Route: 048
     Dates: start: 20170120, end: 20170317
  3. LIMOVAN /00767401/ [Suspect]
     Active Substance: ZOPICLONE
     Indication: PERSISTENT DEPRESSIVE DISORDER
     Dosage: 7.5 MG, DAILY
     Route: 048
     Dates: start: 20170120, end: 20170317

REACTIONS (6)
  - Confusional state [Recovering/Resolving]
  - Product use in unapproved indication [Unknown]
  - Discomfort [Recovering/Resolving]
  - Prescribed underdose [Unknown]
  - Dyspnoea [Recovering/Resolving]
  - Dizziness [Recovering/Resolving]

NARRATIVE: CASE EVENT DATE: 20170120
